FAERS Safety Report 23361342 (Version 1)
Quarter: 2024Q1

REPORT INFORMATION
  Report Type: Spontaneous
  Country: GB (occurrence: GB)
  Receive Date: 20240103
  Receipt Date: 20240103
  Transmission Date: 20240410
  Serious: Yes (Hospitalization)
  Sender: FDA-Public Use
  Company Number: None

PATIENT
  Age: 64 Year

DRUGS (10)
  1. AMBRISENTAN [Suspect]
     Active Substance: AMBRISENTAN
     Indication: Pulmonary hypertension
     Dosage: 10MG OD
     Route: 065
     Dates: end: 20231219
  2. BISOPROLOL [Concomitant]
     Active Substance: BISOPROLOL\BISOPROLOL FUMARATE
  3. LANSOPRAZOLE [Concomitant]
     Active Substance: LANSOPRAZOLE
  4. WARFARIN [Concomitant]
     Active Substance: WARFARIN
  5. ATORVASTATIN [Concomitant]
     Active Substance: ATORVASTATIN
  6. SILDENAFIL [Concomitant]
     Active Substance: SILDENAFIL
  7. LOSARTAN [Concomitant]
     Active Substance: LOSARTAN
  8. BOOTS FRUSEMIDE [Concomitant]
  9. ASPIRIN [Concomitant]
     Active Substance: ASPIRIN
  10. ACETAMINOPHEN [Concomitant]
     Active Substance: ACETAMINOPHEN

REACTIONS (2)
  - Hepatic cancer [Recovering/Resolving]
  - Epistaxis [Recovering/Resolving]
